FAERS Safety Report 15493580 (Version 2)
Quarter: 2018Q4

REPORT INFORMATION
  Report Type: Spontaneous
  Country: US (occurrence: US)
  Receive Date: 20181012
  Receipt Date: 20181109
  Transmission Date: 20190205
  Serious: Yes (Other)
  Sender: FDA-Public Use
  Company Number: US-INCYTE CORPORATION-2018IN010361

PATIENT

DRUGS (3)
  1. DECITABINE. [Concomitant]
     Active Substance: DECITABINE
     Indication: MYELOFIBROSIS
     Dosage: UNK
     Route: 065
  2. JAKAVI [Suspect]
     Active Substance: RUXOLITINIB
     Indication: MYELOFIBROSIS
     Dosage: 20 MG, BID
     Route: 065
  3. JAKAVI [Suspect]
     Active Substance: RUXOLITINIB
     Dosage: 25 UNK, UNK
     Route: 065

REACTIONS (11)
  - Abdominal distension [Unknown]
  - Early satiety [Unknown]
  - Kidney fibrosis [Unknown]
  - Hepatosplenomegaly [Unknown]
  - Secondary amyloidosis [Unknown]
  - Abdominal discomfort [Unknown]
  - Withdrawal syndrome [Unknown]
  - Splenomegaly [Unknown]
  - Myelofibrosis [Not Recovered/Not Resolved]
  - Leukocytosis [Unknown]
  - Anaemia [Unknown]
